FAERS Safety Report 17130334 (Version 3)
Quarter: 2020Q1

REPORT INFORMATION
  Report Type: Spontaneous
  Country: US (occurrence: US)
  Receive Date: 20191209
  Receipt Date: 20200320
  Transmission Date: 20200409
  Serious: Yes (Hospitalization, Other)
  Sender: FDA-Public Use
  Company Number: US-PROGENICS PHARMACEUTICALS-2019PGE00002

PATIENT
  Age: 43 Year
  Sex: Female
  Weight: 49.43 kg

DRUGS (6)
  1. AZEDRA [Suspect]
     Active Substance: IOBENGUANE I-131
     Dosage: UNK (DOSIMETRIC DOSE)
     Route: 042
     Dates: start: 20191015, end: 20191015
  2. IODINE. [Concomitant]
     Active Substance: IODINE
     Dosage: UNK
     Route: 048
     Dates: start: 2019, end: 2019
  3. IODINE. [Concomitant]
     Active Substance: IODINE
     Indication: PREMEDICATION
     Dosage: UNK
     Route: 048
     Dates: start: 2019, end: 2019
  4. IODINE. [Concomitant]
     Active Substance: IODINE
     Dosage: UNK
     Route: 048
     Dates: start: 2019, end: 2019
  5. AZEDRA [Suspect]
     Active Substance: IOBENGUANE I-131
     Indication: PARAGANGLION NEOPLASM
     Dosage: UNK (DOSIMETRIC DOSE)
     Route: 042
     Dates: start: 20190805, end: 20190805
  6. AZEDRA [Suspect]
     Active Substance: IOBENGUANE I-131
     Dosage: UNK (THERAPEUTIC DOSE)
     Route: 042
     Dates: start: 20191028, end: 20191028

REACTIONS (19)
  - Renal impairment [Unknown]
  - Systemic inflammatory response syndrome [Recovering/Resolving]
  - Neutropenia [Unknown]
  - Ureteric obstruction [Recovering/Resolving]
  - Pain [Recovering/Resolving]
  - Abdominal pain lower [Unknown]
  - Constipation [Unknown]
  - Headache [Recovering/Resolving]
  - Sepsis [Recovering/Resolving]
  - Hypokalaemia [Recovering/Resolving]
  - Urinary tract infection bacterial [Recovered/Resolved]
  - Nausea [Recovered/Resolved]
  - Urinary tract infection bacterial [Recovered/Resolved]
  - Urinary tract infection [Recovered/Resolved]
  - Leukopenia [Unknown]
  - Neck pain [Recovering/Resolving]
  - Vomiting [Recovered/Resolved]
  - Musculoskeletal pain [Recovering/Resolving]
  - Pyelonephritis acute [Recovering/Resolving]

NARRATIVE: CASE EVENT DATE: 2019
